FAERS Safety Report 7249319-X (Version None)
Quarter: 2011Q1

REPORT INFORMATION
  Report Type: 
  Country: None (occurrence: None)
  Receive Date: 20110128
  Receipt Date: 20101214
  Transmission Date: 20110831
  Serious: Yes (Life-Threatening, Hospitalization, Other)
  Sender: FDA-Public Use
  Company Number: US-BAYER-2010-005016

PATIENT
  Age: 46 Year
  Sex: Female

DRUGS (2)
  1. AVELOX [Suspect]
     Indication: SINUSITIS
     Dosage: 400MG, QD
     Route: 048
     Dates: start: 20101129
  2. PHENTERMINE [Concomitant]
     Indication: PRODUCT USED FOR UNKNOWN INDICATION

REACTIONS (9)
  - PRURITUS [None]
  - PARAESTHESIA [None]
  - SENSATION OF HEAVINESS [None]
  - HYPERHIDROSIS [None]
  - ABDOMINAL PAIN [None]
  - EYE MOVEMENT DISORDER [None]
  - LOSS OF CONSCIOUSNESS [None]
  - PULSE ABSENT [None]
  - ASTHENIA [None]
